FAERS Safety Report 25483896 (Version 1)
Quarter: 2025Q2

REPORT INFORMATION
  Report Type: Spontaneous
  Country: US (occurrence: None)
  Receive Date: 20250626
  Receipt Date: 20250626
  Transmission Date: 20250716
  Serious: Yes (unspecified)
  Sender: FDA-CTU
  Company Number: None

PATIENT
  Age: 25 Year
  Sex: Male
  Weight: 97.2 kg

DRUGS (8)
  1. DESCOVY [Suspect]
     Active Substance: EMTRICITABINE\TENOFOVIR ALAFENAMIDE FUMARATE
     Indication: Prophylaxis against HIV infection
     Dosage: FREQUENCY : DAILY;?
     Route: 048
     Dates: start: 20230130
  2. BEXAROTENE [Concomitant]
     Active Substance: BEXAROTENE
  3. FENOFIBRATE [Concomitant]
     Active Substance: FENOFIBRATE
  4. ICOSAPENT ETHYL [Concomitant]
     Active Substance: ICOSAPENT ETHYL
  5. LEVOTHYROXINE [Concomitant]
     Active Substance: LEVOTHYROXINE
  6. TARGRETIN [Concomitant]
     Active Substance: BEXAROTENE
  7. AZITHROMYCIN [Concomitant]
     Active Substance: AZITHROMYCIN
  8. DOXYCYCLINE [Concomitant]
     Active Substance: DOXYCYCLINE

REACTIONS (1)
  - Lipids abnormal [None]

NARRATIVE: CASE EVENT DATE: 20250620
